FAERS Safety Report 10493790 (Version 1)
Quarter: 2014Q4

REPORT INFORMATION
  Report Type: Spontaneous
  Country: GB (occurrence: GB)
  Receive Date: 20141002
  Receipt Date: 20141002
  Transmission Date: 20150528
  Serious: Yes (Other)
  Sender: FDA-Public Use
  Company Number: PHHY2014GB127324

PATIENT
  Age: 17 Year
  Sex: Male

DRUGS (1)
  1. RANITIDINE HYDROCHLORIDE. [Suspect]
     Active Substance: RANITIDINE HYDROCHLORIDE
     Indication: CHEST PAIN
     Route: 065

REACTIONS (4)
  - Chest pain [Recovering/Resolving]
  - Off label use [Unknown]
  - Lower respiratory tract infection [Recovering/Resolving]
  - Tachycardia [Recovering/Resolving]
